FAERS Safety Report 5832187-8 (Version None)
Quarter: 2008Q3

REPORT INFORMATION
  Report Type: 
  Country: None (occurrence: None)
  Receive Date: 20080731
  Receipt Date: 20080725
  Transmission Date: 20090109
  Serious: No
  Sender: FDA-Public Use
  Company Number: 08H-163-0314654-00

PATIENT
  Sex: Female

DRUGS (2)
  1. PANHEPRIN [Suspect]
     Indication: DRUG USE FOR UNKNOWN INDICATION
     Dates: start: 20080101, end: 20080401
  2. SODIUM CHLORIDE 0.9% [Concomitant]

REACTIONS (1)
  - DRUG DOSE OMISSION [None]
